FAERS Safety Report 25745841 (Version 1)
Quarter: 2025Q3

REPORT INFORMATION
  Report Type: Report from Study
  Country: US (occurrence: US)
  Receive Date: 20250901
  Receipt Date: 20250901
  Transmission Date: 20251021
  Serious: Yes (Hospitalization)
  Sender: INSMED
  Company Number: US-INSMED, INC.-2025-03303-US

PATIENT
  Sex: Female

DRUGS (1)
  1. ARIKAYCE [Suspect]
     Active Substance: AMIKACIN
     Indication: Mycobacterial infection
     Dosage: INHALE THE CONTENTS OF ONE VIAL (590 MG) VIA NEBULIZER EVERY MONDAY, WEDNESDAY, + FRIDAY MORNING
     Route: 055

REACTIONS (3)
  - Decreased appetite [Unknown]
  - Off label use [Unknown]
  - Product dose omission issue [Unknown]
